FAERS Safety Report 4662281-9 (Version None)
Quarter: 2005Q2

REPORT INFORMATION
  Report Type: 
  Country: None (occurrence: None)
  Receive Date: 20050516
  Receipt Date: 20050504
  Transmission Date: 20051028
  Serious: Yes (Hospitalization)
  Sender: FDA-Public Use
  Company Number: US-JNJFOC-20050501734

PATIENT
  Age: 39 Year
  Sex: Female

DRUGS (3)
  1. TOPAMAX [Suspect]
     Dosage: 100 MG IN AM, 200 MG IN PM
     Route: 049
     Dates: start: 20041201, end: 20050420
  2. TOPAMAX [Suspect]
     Dosage: 50 MG IN AM, 100 MG IN PM
     Route: 049
     Dates: start: 20041201, end: 20050420
  3. TOPAMAX [Suspect]
     Indication: MIGRAINE PROPHYLAXIS
     Route: 049
     Dates: start: 20041201, end: 20050420

REACTIONS (13)
  - ABNORMAL BEHAVIOUR [None]
  - BLOOD CHLORIDE INCREASED [None]
  - CONVULSION [None]
  - DIZZINESS [None]
  - FALL [None]
  - FATIGUE [None]
  - FEELING ABNORMAL [None]
  - GAIT DISTURBANCE [None]
  - HEMIPARESIS [None]
  - INCOHERENT [None]
  - LOSS OF CONSCIOUSNESS [None]
  - RENAL IMPAIRMENT [None]
  - SOMNOLENCE [None]
